FAERS Safety Report 8776823 (Version 2)
Quarter: 2012Q4

REPORT INFORMATION
  Report Type: 
  Country: US (occurrence: US)
  Receive Date: 20120910
  Receipt Date: 20120920
  Transmission Date: 20130627
  Serious: No
  Sender: FDA-Public Use
  Company Number: US-PFIZER INC-2012221513

PATIENT
  Age: 49 Year
  Sex: Female
  Weight: 58.96 kg

DRUGS (4)
  1. EFFEXOR [Suspect]
     Dosage: UNK
  2. EFFEXOR XR [Suspect]
     Indication: DEPRESSION
     Dosage: 37.5 mg, Daily
     Route: 048
     Dates: start: 2012, end: 201206
  3. CELEXA [Suspect]
     Dosage: UNK
  4. TRAZODONE [Suspect]
     Dosage: UNK

REACTIONS (5)
  - Gastrointestinal disorder [Unknown]
  - Nausea [Unknown]
  - Hyperhidrosis [Unknown]
  - Headache [Unknown]
  - Abdominal pain upper [Unknown]
